FAERS Safety Report 22282971 (Version 5)
Quarter: 2025Q4

REPORT INFORMATION
  Report Type: Spontaneous
  Country: US (occurrence: US)
  Receive Date: 20230504
  Receipt Date: 20251215
  Transmission Date: 20260118
  Serious: No
  Sender: DAIICHI
  Company Number: US-DSJP-DSU-2023-117286AA

PATIENT
  Sex: Female

DRUGS (2)
  1. TURALIO [Suspect]
     Active Substance: PEXIDARTINIB HYDROCHLORIDE
     Indication: Soft tissue neoplasm
     Dosage: 125 MG, BID
     Route: 048
     Dates: start: 20230327, end: 20230428
  2. TURALIO [Suspect]
     Active Substance: PEXIDARTINIB HYDROCHLORIDE
     Indication: Connective tissue neoplasm
     Dosage: 125 MG, BID (TWICE DAILY)
     Route: 048
     Dates: start: 20250215

REACTIONS (8)
  - Confusional state [Not Recovered/Not Resolved]
  - Adverse drug reaction [Not Recovered/Not Resolved]
  - Inability to afford medication [Unknown]
  - Dry skin [Unknown]
  - Skin exfoliation [Unknown]
  - Rosacea [Unknown]
  - Product use issue [Unknown]
  - Product dose omission issue [Not Recovered/Not Resolved]

NARRATIVE: CASE EVENT DATE: 20230101
